FAERS Safety Report 10266159 (Version 2)
Quarter: 2014Q3

REPORT INFORMATION
  Report Type: Spontaneous
  Country: NL (occurrence: NL)
  Receive Date: 20140627
  Receipt Date: 20140717
  Transmission Date: 20150326
  Serious: Yes (Hospitalization, Other)
  Sender: FDA-Public Use
  Company Number: NL-009507513-1406NLD008977

PATIENT
  Age: 46 Year
  Sex: Male

DRUGS (9)
  1. SIMVASTATIN. [Suspect]
     Active Substance: SIMVASTATIN
     Dosage: 80 MG, QD
     Route: 048
  2. PEGINTERFERON ALFA-2B [Interacting]
     Active Substance: PEGINTERFERON ALFA-2B
     Indication: HEPATITIS C
     Dosage: 180 MICROGRAM, ONCE WEEKLY
  3. TELAPREVIR [Interacting]
     Active Substance: TELAPREVIR
     Indication: HEPATITIS C
     Dosage: 750 MG, TID
  4. METFORMIN [Interacting]
     Active Substance: METFORMIN HYDROCHLORIDE
     Dosage: 500 MG, QD
  5. RIBAVIRIN. [Interacting]
     Active Substance: RIBAVIRIN
     Indication: HEPATITIS C
     Dosage: 600 MG, TWICE DAILY
     Route: 048
  6. ENALAPRIL MALEATE. [Concomitant]
     Active Substance: ENALAPRIL MALEATE
     Dosage: 20 MG, QD
  7. HYDROCHLOROTHIAZIDE. [Concomitant]
     Active Substance: HYDROCHLOROTHIAZIDE
     Dosage: 12.5 MG, QD
  8. OMEPRAZOLE. [Concomitant]
     Active Substance: OMEPRAZOLE
     Dosage: 40 MG, QD
     Route: 048
  9. LACTULOSE. [Concomitant]
     Active Substance: LACTULOSE
     Dosage: 40 G, TID

REACTIONS (2)
  - Rhabdomyolysis [Recovered/Resolved]
  - Drug interaction [Recovered/Resolved]
